FAERS Safety Report 5136270-4 (Version None)
Quarter: 2006Q4

REPORT INFORMATION
  Report Type: 
  Country: None (occurrence: None)
  Receive Date: 20061027
  Receipt Date: 20061016
  Transmission Date: 20070319
  Serious: Yes (Other)
  Sender: FDA-Public Use
  Company Number: 2006AC01890

PATIENT
  Age: 56 Year
  Sex: Male

DRUGS (5)
  1. BUPIVACAINE [Suspect]
     Route: 008
  2. BUPIVACAINE [Suspect]
     Route: 008
  3. PROPOFOL [Concomitant]
     Indication: INDUCTION OF ANAESTHESIA
  4. SUFENTANIL CITRATE [Concomitant]
     Route: 008
  5. SUFENTANIL CITRATE [Concomitant]
     Route: 008

REACTIONS (2)
  - BRUGADA SYNDROME [None]
  - VENTRICULAR TACHYCARDIA [None]
